FAERS Safety Report 11390828 (Version 3)
Quarter: 2016Q2

REPORT INFORMATION
  Report Type: Spontaneous
  Country: JP (occurrence: JP)
  Receive Date: 20150818
  Receipt Date: 20160421
  Transmission Date: 20160815
  Serious: Yes (Hospitalization)
  Sender: FDA-Public Use
  Company Number: JP-ROCHE-1611608

PATIENT
  Age: 67 Year
  Sex: Female
  Weight: 54 kg

DRUGS (19)
  1. ACTEMRA [Suspect]
     Active Substance: TOCILIZUMAB
     Indication: RHEUMATOID ARTHRITIS
  2. ACTEMRA [Suspect]
     Active Substance: TOCILIZUMAB
     Indication: RHEUMATOID ARTHRITIS
     Route: 042
     Dates: start: 20150309, end: 20150706
  3. PREDNISOLONE. [Concomitant]
     Active Substance: PREDNISOLONE
     Route: 048
  4. METOLATE [Concomitant]
     Active Substance: METHOTREXATE
     Route: 048
     Dates: start: 201401
  5. TAKEPRON [Concomitant]
     Active Substance: LANSOPRAZOLE
     Route: 048
  6. DEPAS [Concomitant]
     Active Substance: ETIZOLAM
     Route: 048
  7. LOXONIN [Concomitant]
     Active Substance: LOXOPROFEN SODIUM
     Route: 061
  8. PREDNISOLONE. [Concomitant]
     Active Substance: PREDNISOLONE
     Dosage: PSL9MG/DAY AT THE MUSCLE HEMORRHAGE ONSET OF THE INCREASE AND DECREASE PROPERLY.
     Route: 048
     Dates: start: 20140815
  9. FOLIAMIN [Concomitant]
     Active Substance: FOLIC ACID
     Route: 048
  10. BAKTAR [Concomitant]
     Active Substance: SULFAMETHOXAZOLE\TRIMETHOPRIM
     Route: 048
  11. BONALON [Concomitant]
     Active Substance: ALENDRONATE SODIUM
     Route: 048
  12. ACTEMRA [Suspect]
     Active Substance: TOCILIZUMAB
     Indication: RHEUMATOID ARTHRITIS
     Route: 058
     Dates: start: 20141225, end: 20150309
  13. METOLATE [Concomitant]
     Active Substance: METHOTREXATE
     Route: 048
     Dates: start: 201405
  14. BREDININ [Concomitant]
     Active Substance: MIZORIBINE
     Route: 048
     Dates: start: 201506
  15. VOLTAREN [Concomitant]
     Active Substance: DICLOFENAC SODIUM
     Route: 048
  16. LYRICA [Concomitant]
     Active Substance: PREGABALIN
     Route: 048
  17. BREDININ [Concomitant]
     Active Substance: MIZORIBINE
     Route: 048
     Dates: start: 20150309
  18. TRAMAL [Concomitant]
     Active Substance: TRAMADOL
     Route: 048
  19. LOXONIN [Concomitant]
     Active Substance: LOXOPROFEN SODIUM
     Route: 061

REACTIONS (3)
  - Purpura [Recovering/Resolving]
  - Muscle haemorrhage [Recovering/Resolving]
  - Factor XIII deficiency [Recovering/Resolving]

NARRATIVE: CASE EVENT DATE: 20150702
